FAERS Safety Report 7153028-5 (Version None)
Quarter: 2010Q4

REPORT INFORMATION
  Report Type: 
  Country: None (occurrence: None)
  Receive Date: 20101213
  Receipt Date: 20101207
  Transmission Date: 20110411
  Serious: Yes (Other)
  Sender: FDA-Public Use
  Company Number: US-AMGEN-USASP2010007857

PATIENT

DRUGS (2)
  1. NPLATE [Suspect]
     Indication: IDIOPATHIC THROMBOCYTOPENIC PURPURA
     Dosage: 6 A?G/KG, QWK
     Dates: start: 20101025
  2. ALLOPURINOL [Suspect]
     Dates: start: 20101026, end: 20101123

REACTIONS (2)
  - DRUG ERUPTION [None]
  - RASH ERYTHEMATOUS [None]
